FAERS Safety Report 5587081-7 (Version None)
Quarter: 2008Q1

REPORT INFORMATION
  Report Type: 
  Country: None (occurrence: None)
  Receive Date: 20080110
  Receipt Date: 20080103
  Transmission Date: 20080703
  Serious: Yes (Hospitalization)
  Sender: FDA-Public Use
  Company Number: US-SANOFI-SYNTHELABO-F03200700186

PATIENT
  Sex: Male
  Weight: 74.6 kg

DRUGS (10)
  1. ZANTAC [Concomitant]
     Dosage: UNK
     Route: 048
  2. XYLOXYLIN [Concomitant]
     Dosage: 5 TO 15 ML
     Route: 065
     Dates: start: 20070724
  3. TOPROL-XL [Concomitant]
     Route: 048
  4. PRILOSEC [Concomitant]
     Route: 048
  5. MAALOX [Concomitant]
     Dosage: UNK
     Route: 048
  6. LISINOPRIL [Concomitant]
     Route: 048
  7. LIPITOR [Concomitant]
     Route: 048
  8. HYDROCODONE [Concomitant]
     Dosage: 7.5/500
     Route: 048
     Dates: start: 20070915
  9. OXALIPLATIN [Suspect]
     Indication: GASTROOESOPHAGEAL CANCER
     Dosage: 40 MG/M2/WEEK ON MONDAY X 5 WEEKS
     Route: 042
     Dates: start: 20070820, end: 20070820
  10. FLUOROURACIL [Suspect]
     Indication: GASTROOESOPHAGEAL CANCER
     Dosage: 2500 MG TOTAL
     Route: 042
     Dates: start: 20070824, end: 20070824

REACTIONS (1)
  - DYSPHAGIA [None]
